FAERS Safety Report 10472076 (Version 2)
Quarter: 2014Q4

REPORT INFORMATION
  Report Type: Spontaneous
  Country: US (occurrence: US)
  Receive Date: 20140924
  Receipt Date: 20141105
  Transmission Date: 20150528
  Serious: Yes (Death, Hospitalization)
  Sender: FDA-Public Use
  Company Number: US-DRREDDYS-USA/USA/14/0043182

PATIENT
  Age: 35 Year
  Sex: Female
  Weight: 82.5 kg

DRUGS (1)
  1. CITALOPRAM [Suspect]
     Active Substance: CITALOPRAM HYDROBROMIDE
     Indication: PRODUCT USED FOR UNKNOWN INDICATION
     Route: 065

REACTIONS (7)
  - Pyrexia [Unknown]
  - Serotonin syndrome [Unknown]
  - Torsade de pointes [Fatal]
  - Seizure [Unknown]
  - Cardiac arrest [Unknown]
  - Intentional overdose [Fatal]
  - Tachycardia [Fatal]
